FAERS Safety Report 6340639-X (Version None)
Quarter: 2009Q3

REPORT INFORMATION
  Report Type: 
  Country: None (occurrence: None)
  Receive Date: 20090904
  Receipt Date: 20090826
  Transmission Date: 20100115
  Serious: Yes (Death, Hospitalization, Other)
  Sender: FDA-Public Use
  Company Number: GB-AVENTIS-200919699GDDC

PATIENT
  Age: 66 Year
  Sex: Male

DRUGS (11)
  1. GLIBENCLAMIDE [Suspect]
  2. METFORMIN HCL [Suspect]
  3. ALLOPURINOL [Suspect]
  4. GANCICLOVIR [Suspect]
     Indication: CYTOMEGALOVIRUS INFECTION
     Dosage: DOSE: 5 MG/KG
     Route: 042
  5. ASPIRIN [Concomitant]
  6. OMEPRAZOLE [Concomitant]
  7. FUROSEMIDE [Concomitant]
  8. RAMIPRIL [Concomitant]
  9. SIMVASTATIN [Concomitant]
  10. METRONIDAZOLE [Concomitant]
  11. CIPROFLAXACIN [Concomitant]

REACTIONS (7)
  - ACINETOBACTER INFECTION [None]
  - CANDIDURIA [None]
  - CYTOMEGALOVIRUS ENTERITIS [None]
  - DRUG INEFFECTIVE [None]
  - RENAL FAILURE [None]
  - RESPIRATORY FAILURE [None]
  - STAPHYLOCOCCAL INFECTION [None]
